FAERS Safety Report 8273113-4 (Version None)
Quarter: 2012Q2

REPORT INFORMATION
  Report Type: 
  Country: None (occurrence: None)
  Receive Date: 20120411
  Receipt Date: 20120403
  Transmission Date: 20120825
  Serious: Yes (Other)
  Sender: FDA-Public Use
  Company Number: GB-JNJFOC-20120403310

PATIENT

DRUGS (36)
  1. VINCRISTINE [Suspect]
     Route: 042
  2. PREDNISOLONE [Suspect]
     Route: 048
  3. PREDNISOLONE [Suspect]
     Route: 048
  4. BLEOMYCIN SULFATE [Suspect]
     Indication: HODGKIN'S DISEASE
     Route: 042
  5. VINCRISTINE [Suspect]
     Indication: HODGKIN'S DISEASE
     Route: 042
  6. VINCRISTINE [Suspect]
     Route: 042
  7. DACARBAZINE [Suspect]
     Indication: HODGKIN'S DISEASE
     Route: 042
  8. DACARBAZINE [Suspect]
     Route: 042
  9. VINBLASTINE SULFATE [Suspect]
     Route: 042
  10. PROCARBAZINE HYDROCHLORIDE [Suspect]
     Indication: HODGKIN'S DISEASE
     Route: 048
  11. VINBLASTINE SULFATE [Suspect]
     Indication: HODGKIN'S DISEASE
     Route: 042
  12. PROCARBAZINE HYDROCHLORIDE [Suspect]
     Route: 048
  13. PREDNISOLONE [Suspect]
     Route: 048
  14. ETOPOSIDE [Suspect]
     Indication: HODGKIN'S DISEASE
     Route: 065
  15. DOXORUBICIN HCL [Suspect]
     Route: 042
  16. BLEOMYCIN SULFATE [Suspect]
     Route: 042
  17. VINBLASTINE SULFATE [Suspect]
     Route: 042
  18. IFOSFAMIDE [Suspect]
     Indication: HODGKIN'S DISEASE
     Route: 065
  19. DOXORUBICIN HCL [Suspect]
     Indication: HODGKIN'S DISEASE
     Route: 042
  20. DOXORUBICIN HCL [Suspect]
     Route: 042
  21. VINCRISTINE [Suspect]
     Route: 042
  22. CHLORAMBUCIL [Suspect]
     Route: 048
  23. DOXORUBICIN HCL [Suspect]
     Route: 042
  24. RADIOTHERAPY [Suspect]
     Indication: HODGKIN'S DISEASE
     Route: 065
  25. BLEOMYCIN SULFATE [Suspect]
     Route: 042
  26. DACARBAZINE [Suspect]
     Route: 042
  27. CHLORAMBUCIL [Suspect]
     Indication: HODGKIN'S DISEASE
     Route: 048
  28. CHLORAMBUCIL [Suspect]
     Route: 048
  29. CHLORAMBUCIL [Suspect]
     Route: 048
  30. PROCARBAZINE HYDROCHLORIDE [Suspect]
     Route: 048
  31. PROCARBAZINE HYDROCHLORIDE [Suspect]
     Route: 048
  32. PREDNISOLONE [Suspect]
     Indication: HODGKIN'S DISEASE
     Route: 048
  33. BLEOMYCIN SULFATE [Suspect]
     Route: 042
  34. DACARBAZINE [Suspect]
     Route: 042
  35. VINBLASTINE SULFATE [Suspect]
     Route: 042
  36. CISPLATIN [Suspect]
     Indication: HODGKIN'S DISEASE
     Route: 065

REACTIONS (1)
  - DIFFUSE LARGE B-CELL LYMPHOMA [None]
